FAERS Safety Report 6015139-7 (Version None)
Quarter: 2008Q4

REPORT INFORMATION
  Report Type: 
  Country: None (occurrence: None)
  Receive Date: 20081219
  Receipt Date: 20081219
  Transmission Date: 20090506
  Serious: Yes (Other)
  Sender: FDA-Public Use
  Company Number: None

PATIENT
  Sex: Male
  Weight: 127.0072 kg

DRUGS (1)
  1. OXACILLIN SODIUM [Suspect]
     Indication: WOUND INFECTION STAPHYLOCOCCAL
     Dosage: 2 GM Q4 IV-PICC
     Route: 042
     Dates: start: 20081212, end: 20081217

REACTIONS (1)
  - RASH [None]
